FAERS Safety Report 13490890 (Version 2)
Quarter: 2017Q2

REPORT INFORMATION
  Report Type: Spontaneous
  Country: US (occurrence: US)
  Receive Date: 20170427
  Receipt Date: 20170427
  Transmission Date: 20170830
  Serious: Yes (Other)
  Sender: FDA-Public Use
  Company Number: US-BRISTOL-MYERS SQUIBB COMPANY-BMS-2017-034800

PATIENT
  Sex: Male

DRUGS (1)
  1. IPILIMUMAB [Suspect]
     Active Substance: IPILIMUMAB
     Indication: PROSTATE CANCER
     Dosage: 10 MG/KG, Q3WK
     Route: 042

REACTIONS (5)
  - Spinal cord compression [Unknown]
  - Prescribed overdose [Unknown]
  - Rash [Unknown]
  - Diarrhoea [Unknown]
  - Infusion related reaction [Unknown]
